FAERS Safety Report 5955097-4 (Version None)
Quarter: 2008Q4

REPORT INFORMATION
  Report Type: 
  Country: None (occurrence: None)
  Receive Date: 20081113
  Receipt Date: 20081113
  Transmission Date: 20090506
  Serious: Yes (Hospitalization, Other)
  Sender: FDA-Public Use
  Company Number: None

PATIENT
  Age: 21 Year
  Sex: Female
  Weight: 63.5036 kg

DRUGS (1)
  1. SYNTHROID [Suspect]
     Indication: HYPOTHYROIDISM
     Dosage: 25 MCG ONCE DAILY PO
     Route: 048
     Dates: start: 19980701, end: 20081015

REACTIONS (7)
  - DIAPHRAGMATIC DISORDER [None]
  - DYSKINESIA [None]
  - HICCUPS [None]
  - MUSCLE SPASMS [None]
  - MUSCLE TWITCHING [None]
  - NEURALGIA [None]
  - PRODUCT QUALITY ISSUE [None]
